FAERS Safety Report 4477332-4 (Version None)
Quarter: 2004Q4

REPORT INFORMATION
  Report Type: 
  Country: None (occurrence: None)
  Receive Date: 20041013
  Receipt Date: 20041008
  Transmission Date: 20050328
  Serious: Yes (Hospitalization)
  Sender: FDA-Public Use
  Company Number: A044-002-005239

PATIENT
  Age: 79 Year
  Sex: Female

DRUGS (2)
  1. ARICEPT [Suspect]
     Indication: SENILE DEMENTIA
     Dosage: 10 MG, 1 IN 1 D, ORAL
     Route: 048
  2. PROZAC [Concomitant]

REACTIONS (2)
  - ANTIBODY TEST POSITIVE [None]
  - PEMPHIGUS [None]
